FAERS Safety Report 10066630 (Version 1)
Quarter: 2014Q2

REPORT INFORMATION
  Report Type: Spontaneous
  Country: US (occurrence: None)
  Receive Date: 20140401
  Receipt Date: 20140401
  Transmission Date: 20141212
  Serious: Yes (Other)
  Sender: FDA-Public Use
  Company Number: PHEH2013US003284

PATIENT
  Age: 68 Year
  Sex: Male

DRUGS (6)
  1. EXELON PATCH (RIVASTIGMINE) TRANS-THERAPEUTIC-SYSTEM [Suspect]
     Indication: PARKINSON^S DISEASE
     Route: 062
  2. CARBIDOPA LEVODOPA (CARBIDOPA, LEVODOPA) [Concomitant]
  3. PAROXETINE (PAROXETINE) [Concomitant]
  4. OMEPRAZOLE (OMEPRAZOLE) [Concomitant]
  5. SEROQUEL (QUETIAPINE FUMARATE) [Concomitant]
  6. MULTI-VIT (VITAMINS NOS) [Concomitant]

REACTIONS (4)
  - Parkinson^s disease [None]
  - Wrong technique in drug usage process [None]
  - Drug administration error [None]
  - Drug ineffective [None]
